FAERS Safety Report 11936276 (Version 1)
Quarter: 2016Q1

REPORT INFORMATION
  Report Type: Spontaneous
  Country: US (occurrence: US)
  Receive Date: 20160121
  Receipt Date: 20160121
  Transmission Date: 20160526
  Serious: No
  Sender: FDA-Public Use
  Company Number: US-BAYER-2016-012450

PATIENT
  Age: 4 Year
  Sex: Male
  Weight: 18.14 kg

DRUGS (1)
  1. CHILDREN CLARITIN ALLERGY [Suspect]
     Active Substance: LORATADINE
     Indication: NASOPHARYNGITIS
     Dosage: 1 TEASPOON, QD
     Dates: start: 20160119

REACTIONS (1)
  - Product use issue [None]

NARRATIVE: CASE EVENT DATE: 20160119
